FAERS Safety Report 16228491 (Version 1)
Quarter: 2019Q2

REPORT INFORMATION
  Report Type: Spontaneous
  Country: US (occurrence: US)
  Receive Date: 20190422
  Receipt Date: 20190422
  Transmission Date: 20190711
  Serious: Yes (Disabling, Other)
  Sender: FDA-Public Use
  Company Number: None

PATIENT
  Age: 86 Year
  Sex: Female

DRUGS (7)
  1. VITAMIN D [Concomitant]
     Active Substance: VITAMIN D NOS
  2. LETROZOLE. [Concomitant]
     Active Substance: LETROZOLE
  3. LEVOTHYROXINE. [Concomitant]
     Active Substance: LEVOTHYROXINE
  4. AMLODIPINE [Concomitant]
     Active Substance: AMLODIPINE BESYLATE
  5. CITRICAL [Concomitant]
     Active Substance: CALCIUM CITRATE
  6. OSCAL [Concomitant]
     Active Substance: CALCIUM CARBONATE
  7. PROLIA [Suspect]
     Active Substance: DENOSUMAB
     Indication: CHEMOTHERAPY
     Dates: start: 20180901, end: 20190329

REACTIONS (5)
  - Nausea [None]
  - Neck pain [None]
  - Ear infection [None]
  - Dizziness [None]
  - Pain in jaw [None]

NARRATIVE: CASE EVENT DATE: 20180901
